FAERS Safety Report 12215230 (Version 1)
Quarter: 2016Q1

REPORT INFORMATION
  Report Type: Spontaneous
  Country: US (occurrence: US)
  Receive Date: 20160328
  Receipt Date: 20160328
  Transmission Date: 20160526
  Serious: Yes (Other)
  Sender: FDA-Public Use
  Company Number: US-EMD SERONO-8074163

PATIENT

DRUGS (1)
  1. REBIF [Suspect]
     Active Substance: INTERFERON BETA-1A
     Indication: PRODUCT USED FOR UNKNOWN INDICATION

REACTIONS (6)
  - Cerebrovascular insufficiency [Unknown]
  - Balance disorder [Unknown]
  - Tremor [Unknown]
  - Fatigue [Unknown]
  - Varicose vein [Unknown]
  - Exposure to contaminated device [Unknown]
